FAERS Safety Report 6135128-1 (Version None)
Quarter: 2009Q1

REPORT INFORMATION
  Report Type: 
  Country: None (occurrence: None)
  Receive Date: 20090327
  Receipt Date: 20090318
  Transmission Date: 20090719
  Serious: Yes (Hospitalization, Other)
  Sender: FDA-Public Use
  Company Number: US-MERCK-0804USA01803

PATIENT
  Age: 53 Year
  Sex: Female
  Weight: 51 kg

DRUGS (5)
  1. FOSAMAX [Suspect]
     Indication: OSTEOPOROSIS
     Route: 048
     Dates: start: 20011101
  2. FOSAMAX [Suspect]
     Route: 048
     Dates: start: 20020401, end: 20041001
  3. FOSAMAX [Suspect]
     Indication: OSTEOPENIA
     Route: 048
     Dates: start: 20011101
  4. FOSAMAX [Suspect]
     Route: 048
     Dates: start: 20020401, end: 20041001
  5. PREMARIN [Concomitant]
     Indication: HORMONE REPLACEMENT THERAPY
     Route: 065

REACTIONS (40)
  - ANXIETY [None]
  - ARTERIOSCLEROSIS [None]
  - ARTICULAR DISC DISORDER [None]
  - CARDIAC DISORDER [None]
  - CORONARY ARTERY OCCLUSION [None]
  - DENTAL ALVEOLAR ANOMALY [None]
  - DEPRESSION [None]
  - DIARRHOEA [None]
  - DRUG HYPERSENSITIVITY [None]
  - DYSPEPSIA [None]
  - HEADACHE [None]
  - HEARING IMPAIRED [None]
  - HIATUS HERNIA [None]
  - HYPERLIPIDAEMIA [None]
  - HYPERSENSITIVITY [None]
  - HYPERTHYROIDISM [None]
  - INJURY [None]
  - JAW DISORDER [None]
  - JAW FRACTURE [None]
  - MOOD DISORDER DUE TO A GENERAL MEDICAL CONDITION [None]
  - MUSCULOSKELETAL PAIN [None]
  - MYOFASCIAL PAIN SYNDROME [None]
  - MYOSITIS [None]
  - NECK PAIN [None]
  - OSTEOMYELITIS [None]
  - OSTEONECROSIS [None]
  - PERIARTHRITIS [None]
  - RESORPTION BONE INCREASED [None]
  - ROAD TRAFFIC ACCIDENT [None]
  - ROTATOR CUFF SYNDROME [None]
  - SEXUAL DYSFUNCTION [None]
  - SIALOADENITIS [None]
  - SPINAL CORD DISORDER [None]
  - SPINAL OSTEOARTHRITIS [None]
  - SWELLING [None]
  - TEMPOROMANDIBULAR JOINT SYNDROME [None]
  - URINARY TRACT INFECTION [None]
  - URTICARIA [None]
  - VIRAL UPPER RESPIRATORY TRACT INFECTION [None]
  - VISUAL IMPAIRMENT [None]
